FAERS Safety Report 21733524 (Version 1)
Quarter: 2022Q4

REPORT INFORMATION
  Report Type: Spontaneous
  Country: PK (occurrence: None)
  Receive Date: 20221215
  Receipt Date: 20221215
  Transmission Date: 20230113
  Serious: Yes (unspecified)
  Sender: FDA-Public Use
  Company Number: None

PATIENT
  Age: 21 Year
  Sex: Male
  Weight: 45 kg

DRUGS (1)
  1. FLUOCINOLONE ACETONIDE\HYDROQUINONE\TRETINOIN [Suspect]
     Active Substance: FLUOCINOLONE ACETONIDE\HYDROQUINONE\TRETINOIN
     Indication: Acne
     Dates: start: 20221213, end: 20221214

REACTIONS (3)
  - Application site erythema [None]
  - Application site dryness [None]
  - Burning sensation [None]

NARRATIVE: CASE EVENT DATE: 20221214
